FAERS Safety Report 6242097-2 (Version None)
Quarter: 2009Q2

REPORT INFORMATION
  Report Type: 
  Country: None (occurrence: None)
  Receive Date: 20090624
  Receipt Date: 20090611
  Transmission Date: 20091009
  Serious: Yes (Disabling, Other)
  Sender: FDA-Public Use
  Company Number: US-PFIZER INC-2009226816

PATIENT
  Sex: Female
  Weight: 68.481 kg

DRUGS (3)
  1. CHANTIX [Suspect]
     Indication: SMOKING CESSATION THERAPY
     Dosage: UNK
     Route: 048
     Dates: start: 20090101, end: 20090501
  2. MELOXICAM [Suspect]
     Indication: ARTHRALGIA
     Dosage: 15 MG, 1X/DAY
     Route: 048
     Dates: start: 20090310, end: 20090401
  3. BUPROPION [Concomitant]
     Dates: end: 20090301

REACTIONS (6)
  - ABNORMAL BEHAVIOUR [None]
  - ARTHRALGIA [None]
  - GASTROINTESTINAL HAEMORRHAGE [None]
  - JOINT SWELLING [None]
  - MELAENA [None]
  - PARANOIA [None]
